FAERS Safety Report 11377846 (Version 1)
Quarter: 2015Q3

REPORT INFORMATION
  Report Type: Spontaneous
  Country: US (occurrence: US)
  Receive Date: 20150811
  Receipt Date: 20150811
  Transmission Date: 20151125
  Serious: No
  Sender: FDA-Public Use
  Company Number: US-ELI_LILLY_AND_COMPANY-US200909003973

PATIENT
  Age: 55 Year
  Sex: Female

DRUGS (6)
  1. IRON [Concomitant]
     Active Substance: IRON
  2. FLONASE [Concomitant]
     Active Substance: FLUTICASONE PROPIONATE
  3. FUROSEMIDE. [Concomitant]
     Active Substance: FUROSEMIDE
  4. HUMULIN N [Suspect]
     Active Substance: INSULIN HUMAN
     Dosage: 40 U, EACH MORNING
     Dates: start: 200812
  5. BENICAR [Concomitant]
     Active Substance: OLMESARTAN MEDOXOMIL
  6. MELOXICAM. [Concomitant]
     Active Substance: MELOXICAM

REACTIONS (3)
  - Drug ineffective [Not Recovered/Not Resolved]
  - Blood glucose increased [Not Recovered/Not Resolved]
  - Vision blurred [Not Recovered/Not Resolved]

NARRATIVE: CASE EVENT DATE: 20090917
